FAERS Safety Report 16851243 (Version 3)
Quarter: 2019Q4

REPORT INFORMATION
  Report Type: Spontaneous
  Country: US (occurrence: US)
  Receive Date: 20190925
  Receipt Date: 20191105
  Transmission Date: 20200122
  Serious: No
  Sender: FDA-Public Use
  Company Number: PHEH2019US039080

PATIENT
  Age: 1 Year
  Sex: Female
  Weight: 8.2 kg

DRUGS (3)
  1. ZOLGENSMA [Suspect]
     Active Substance: ONASEMNOGENE ABEPARVOVEC-XIOI
     Indication: SPINAL MUSCULAR ATROPHY
     Dosage: UNK UNK, ONCE/SINGLE
     Route: 042
     Dates: start: 20190801, end: 20190801
  2. RANITIDINE. [Suspect]
     Active Substance: RANITIDINE
     Indication: SPINAL MUSCULAR ATROPHY
     Dosage: UNK
     Route: 048
     Dates: start: 20190731
  3. PREDNISONE. [Suspect]
     Active Substance: PREDNISONE
     Indication: SPINAL MUSCULAR ATROPHY
     Dosage: 2.75 ML, QD
     Route: 048
     Dates: start: 20190731

REACTIONS (3)
  - Aspartate aminotransferase increased [Recovering/Resolving]
  - Alanine aminotransferase increased [Recovering/Resolving]
  - Troponin increased [Not Recovered/Not Resolved]

NARRATIVE: CASE EVENT DATE: 20190821
